FAERS Safety Report 10427927 (Version 5)
Quarter: 2014Q4

REPORT INFORMATION
  Report Type: Report from Study
  Country: US (occurrence: US)
  Receive Date: 20140903
  Receipt Date: 20141203
  Transmission Date: 20150528
  Serious: Yes (Death, Other)
  Sender: FDA-Public Use
  Company Number: US-BAYER-2014-125763

PATIENT
  Age: 85 Year
  Sex: Female

DRUGS (4)
  1. NEXAVAR [Suspect]
     Active Substance: SORAFENIB
     Indication: HEPATIC CANCER
     Dosage: 200 MG, BID
     Route: 048
     Dates: start: 20141010, end: 20141019
  2. NEXAVAR [Suspect]
     Active Substance: SORAFENIB
     Indication: HEPATIC CANCER
     Dosage: 200 MG, BID
     Route: 048
     Dates: start: 20140812, end: 20140822
  3. NEXAVAR [Suspect]
     Active Substance: SORAFENIB
     Indication: HEPATIC CANCER
     Dosage: 200 MG, QD
     Route: 048
     Dates: start: 20140826
  4. NEXAVAR [Suspect]
     Active Substance: SORAFENIB
     Indication: HEPATIC CANCER
     Dosage: 200 MG, QD
     Route: 048
     Dates: start: 20141020, end: 20141102

REACTIONS (15)
  - Dysarthria [None]
  - Chest pain [None]
  - Subcutaneous haematoma [None]
  - Loss of consciousness [Recovered/Resolved]
  - Death [Fatal]
  - Headache [None]
  - Alopecia [None]
  - Dysarthria [None]
  - Decreased appetite [None]
  - Fatigue [Not Recovered/Not Resolved]
  - Fall [None]
  - Contusion [None]
  - Muscle spasms [None]
  - Skin lesion [Recovered/Resolved]
  - Asthenia [None]

NARRATIVE: CASE EVENT DATE: 20140812
